FAERS Safety Report 9688309 (Version 1)
Quarter: 2013Q4

REPORT INFORMATION
  Report Type: Report from Study
  Country: US (occurrence: US)
  Receive Date: 20131114
  Receipt Date: 20131114
  Transmission Date: 20140711
  Serious: Yes (Other)
  Sender: FDA-Public Use
  Company Number: US-SA-2013SA115476

PATIENT
  Age: 57 Year
  Sex: Female

DRUGS (1)
  1. AUBAGIO [Suspect]
     Indication: MULTIPLE SCLEROSIS
     Dosage: THERAPY STOP DATE: LAST WEDNESDAY (30 OCT, 2013)
     Route: 048
     Dates: start: 201310

REACTIONS (5)
  - Paralysis [Unknown]
  - Condition aggravated [Unknown]
  - Insomnia [Unknown]
  - Feeling jittery [Unknown]
  - Pain [Unknown]
